FAERS Safety Report 24903901 (Version 1)
Quarter: 2025Q1

REPORT INFORMATION
  Report Type: Spontaneous
  Country: PT (occurrence: PT)
  Receive Date: 20250130
  Receipt Date: 20250130
  Transmission Date: 20250409
  Serious: Yes (Other)
  Sender: TEVA
  Company Number: None

PATIENT
  Age: 45 Year
  Sex: Female
  Weight: 68 kg

DRUGS (1)
  1. BUPRENORPHINE [Suspect]
     Active Substance: BUPRENORPHINE
     Indication: Analgesic therapy
     Dosage: 1 STICKER EVERY 3 DAYS:  BUPRENORPHINE RATIOPHARM
     Route: 062
     Dates: start: 20240807, end: 20240814

REACTIONS (5)
  - Somnolence [Recovered/Resolved]
  - Fatigue [Recovered/Resolved]
  - Product substitution issue [Recovered/Resolved]
  - Therapeutic response shortened [Recovered/Resolved]
  - Dizziness [Recovered/Resolved]

NARRATIVE: CASE EVENT DATE: 20240807
